FAERS Safety Report 4285895-7 (Version None)
Quarter: 2004Q1

REPORT INFORMATION
  Report Type: 
  Country: None (occurrence: None)
  Receive Date: 20040203
  Receipt Date: 20040123
  Transmission Date: 20041129
  Serious: Yes (Other)
  Sender: FDA-Public Use
  Company Number: HQWYE548823JAN04

PATIENT
  Age: 82 Year
  Sex: Female

DRUGS (7)
  1. CORDARONE [Suspect]
     Indication: VENTRICULAR TACHYCARDIA
     Dosage: 900 MG CONTINUOUS INTRAVENOUS
     Route: 042
     Dates: start: 20040101, end: 20040102
  2. LIDOCAINE (LIDOCAINE), UNSPECIFIED, UNKNOWN [Concomitant]
  3. LASIX (FUROSEMIDE), UNSPECIFIED, UNKNOWN [Concomitant]
  4. LANOXIN (DIGOXIN), UNSPECIFIED, UNKNOWN [Concomitant]
  5. TORADOL (KETOROLAC TROMETHAMINE), UNSPECIFIED, UNKNOWN [Concomitant]
  6. UNASYN (AMPICILLIN SODIUM/SULBACTAM SODIUM), UNSPECIFIED, UNKNOWN [Concomitant]
  7. NADROPARIN CALCIUM (NADROPARIN CALCIUM), UNSPECIFIED, UNKNOWN [Concomitant]

REACTIONS (1)
  - HEPATITIS TOXIC [None]
